FAERS Safety Report 8380450-1 (Version None)
Quarter: 2012Q2

REPORT INFORMATION
  Report Type: 
  Country: None (occurrence: None)
  Receive Date: 20120523
  Receipt Date: 20120515
  Transmission Date: 20120825
  Serious: Yes (Hospitalization)
  Sender: FDA-Public Use
  Company Number: US-GLAXOSMITHKLINE-A0977697A

PATIENT
  Age: 26 Year
  Sex: Female

DRUGS (4)
  1. FOLIC ACID [Concomitant]
  2. POTASSIUM CHLORIDE [Concomitant]
  3. ADVAIR DISKUS 100/50 [Suspect]
     Indication: ASTHMA
     Dosage: 1PUFF TWICE PER DAY
     Route: 055
     Dates: start: 20100101
  4. IRON [Concomitant]

REACTIONS (6)
  - HEART RATE INCREASED [None]
  - WHEEZING [None]
  - NASOPHARYNGITIS [None]
  - MATERNAL EXPOSURE DURING PREGNANCY [None]
  - COUGH [None]
  - DYSPNOEA [None]
